FAERS Safety Report 9856627 (Version 2)
Quarter: 2014Q4

REPORT INFORMATION
  Report Type: Spontaneous
  Country: IT (occurrence: IT)
  Receive Date: 20140130
  Receipt Date: 20141111
  Transmission Date: 20150529
  Serious: Yes (Other)
  Sender: FDA-Public Use
  Company Number: IT-TEVA-457668ISR

PATIENT
  Age: 73 Year
  Sex: Male

DRUGS (7)
  1. CARBOPLATIN. [Suspect]
     Active Substance: CARBOPLATIN
     Route: 041
     Dates: start: 20131028, end: 20141107
  2. XELODA [Concomitant]
     Active Substance: CAPECITABINE
     Dosage: 3200 MILLIGRAM DAILY;
     Route: 048
  3. DESAMETASONE FOSFATO HOSPIRA [Concomitant]
     Dosage: 8 MILLIGRAM DAILY;
     Route: 041
     Dates: start: 20131107, end: 20131107
  4. PACLITAXEL MYLAN GENERICS [Concomitant]
     Active Substance: PACLITAXEL
     Indication: GASTROINTESTINAL NEOPLASM
     Dosage: 130 MILLIGRAM DAILY; CONCENTRATE FOR SOLUTION FOR INTRAVENOUS INFUSION
     Route: 041
     Dates: start: 20131107, end: 20131107
  5. RANITIDINE [Concomitant]
     Active Substance: RANITIDINE\RANITIDINE HYDROCHLORIDE
     Dosage: 50 MILLIGRAM DAILY;
     Route: 042
     Dates: start: 20131107, end: 20131107
  6. ATENOLOLO TEVA [Concomitant]
  7. PARIET [Concomitant]
     Active Substance: RABEPRAZOLE SODIUM

REACTIONS (2)
  - Pruritus [Recovered/Resolved]
  - Laryngospasm [Recovered/Resolved]

NARRATIVE: CASE EVENT DATE: 20131107
